FAERS Safety Report 21269737 (Version 1)
Quarter: 2022Q3

REPORT INFORMATION
  Report Type: Spontaneous
  Country: US (occurrence: None)
  Receive Date: 20220829
  Receipt Date: 20220829
  Transmission Date: 20221027
  Serious: Yes (Hospitalization)
  Sender: FDA-Public Use
  Company Number: None

PATIENT
  Sex: Male

DRUGS (10)
  1. NUCALA [Suspect]
     Active Substance: MEPOLIZUMAB
  2. ALBUTEROL AER HFA [Concomitant]
  3. AZITHROMYCIN TAB [Concomitant]
  4. BREO ELLIPTA INH [Concomitant]
  5. CEPHALEXIN CAP [Concomitant]
  6. ESCITALOPRAM TAB [Concomitant]
  7. IPRATROPIUM SOL [Concomitant]
  8. IPRATROPIUM SPR [Concomitant]
  9. MONTELUKAST SODIUM [Concomitant]
     Active Substance: MONTELUKAST SODIUM
  10. PREDNISONE [Concomitant]
     Active Substance: PREDNISONE

REACTIONS (2)
  - Asthma [None]
  - Impaired quality of life [None]
